FAERS Safety Report 21161073 (Version 1)
Quarter: 2022Q3

REPORT INFORMATION
  Report Type: Spontaneous
  Country: US (occurrence: US)
  Receive Date: 20220802
  Receipt Date: 20220802
  Transmission Date: 20221027
  Serious: Yes (Hospitalization, Other)
  Sender: FDA-Public Use
  Company Number: US-PFIZER INC-PV202200033820

PATIENT
  Age: 52 Year
  Sex: Female
  Weight: 80.726 kg

DRUGS (1)
  1. PAXLOVID [Suspect]
     Active Substance: NIRMATRELVIR\RITONAVIR
     Indication: COVID-19 treatment
     Dosage: UNK
     Dates: start: 20220629

REACTIONS (5)
  - Pain in extremity [Unknown]
  - Joint range of motion decreased [Unknown]
  - Swelling [Unknown]
  - Hypoaesthesia [Unknown]
  - Muscle rupture [Unknown]

NARRATIVE: CASE EVENT DATE: 20220704
